FAERS Safety Report 7545895-8 (Version None)
Quarter: 2011Q2

REPORT INFORMATION
  Report Type: 
  Country: None (occurrence: None)
  Receive Date: 20110607
  Receipt Date: 20110524
  Transmission Date: 20111010
  Serious: Yes (Other)
  Sender: FDA-Public Use
  Company Number: IDA-00550

PATIENT
  Sex: Female

DRUGS (2)
  1. INDERAL [Suspect]
     Indication: MIGRAINE
     Dosage: DAILY UNK; ROUTE OF ADMINISTRATION:
  2. CRESTOR [Suspect]
     Indication: BLOOD CHOLESTEROL INCREASED
     Dosage: DAILY DOSE: 10 MG DAILY; ORAL TABLET
     Route: 048
     Dates: start: 20110101, end: 20110101

REACTIONS (2)
  - RENAL FAILURE ACUTE [None]
  - PAIN [None]
